FAERS Safety Report 6657889-5 (Version None)
Quarter: 2010Q1

REPORT INFORMATION
  Report Type: 
  Country: None (occurrence: None)
  Receive Date: 20100326
  Receipt Date: 20100311
  Transmission Date: 20100710
  Serious: Yes (Hospitalization)
  Sender: FDA-Public Use
  Company Number: LMI-2010-00142

PATIENT
  Age: 55 Year
  Sex: Female
  Weight: 70.3075 kg

DRUGS (9)
  1. DEFINITY [Suspect]
     Indication: STRESS ECHOCARDIOGRAM
     Dosage: 1.3 ML OF DEFINITY DILUTED
     Dates: start: 20100311, end: 20100311
  2. ALBUTEROL (SALBUTAMOL) (INHALANT) [Concomitant]
  3. NASONEX (MOMETASONE FUROATE) (SPRAY (NOT INHALATION)) [Concomitant]
  4. PROZAC [Concomitant]
  5. MULTIVITAMIN (VITAMINS NOS) (TABLESTS) [Concomitant]
  6. CALCIUM (CALCIUM) (TABLETS) [Concomitant]
  7. VITAMIN D (VITAMIN D NOS) (TABLETS) [Concomitant]
  8. LEVOTHYROXINE (LEVOTHYROXINE)(TABLETS) [Concomitant]
  9. SIMVASTATIN (SIMVASTATIN) (TABLETS) [Concomitant]

REACTIONS (4)
  - BACK PAIN [None]
  - BLOOD PRESSURE INCREASED [None]
  - CHEST PAIN [None]
  - NECK PAIN [None]
